FAERS Safety Report 17528534 (Version 3)
Quarter: 2020Q2

REPORT INFORMATION
  Report Type: Spontaneous
  Country: US (occurrence: US)
  Receive Date: 20200312
  Receipt Date: 20200602
  Transmission Date: 20200713
  Serious: Yes (Hospitalization, Other)
  Sender: FDA-Public Use
  Company Number: US-SHIRE-US202009094

PATIENT
  Sex: Female

DRUGS (2)
  1. GATTEX [Suspect]
     Active Substance: TEDUGLUTIDE\WATER
     Indication: CROHN^S DISEASE
     Dosage: 0.53 MILLILITER, 1X/DAY:QD
     Route: 058
     Dates: start: 20200216, end: 20200515
  2. GATTEX [Suspect]
     Active Substance: TEDUGLUTIDE\WATER
     Indication: SHORT-BOWEL SYNDROME
     Dosage: 0.53 MILLILITER, 1X/DAY:QD
     Route: 058

REACTIONS (3)
  - Fluid retention [Unknown]
  - Hypersensitivity [Unknown]
  - Fluid overload [Unknown]
